FAERS Safety Report 10891607 (Version 1)
Quarter: 2015Q1

REPORT INFORMATION
  Report Type: Spontaneous
  Country: US (occurrence: US)
  Receive Date: 20150306
  Receipt Date: 20150306
  Transmission Date: 20150721
  Serious: Yes (Other)
  Sender: FDA-Public Use
  Company Number: US-BEH-2015049254

PATIENT
  Age: 50 Year
  Sex: Female

DRUGS (1)
  1. IMMUNE GLOBULIN SUBCUTANEOUS (HUMAN) [Suspect]
     Active Substance: HUMAN IMMUNOGLOBULIN G
     Indication: HUMORAL IMMUNE DEFECT
     Route: 058

REACTIONS (1)
  - Fibromyalgia [Recovered/Resolved]
